FAERS Safety Report 8610239 (Version 2)
Quarter: 2013Q3

REPORT INFORMATION
  Report Type: Report from Study
  Country: CA (occurrence: CA)
  Receive Date: 20120612
  Receipt Date: 20130723
  Transmission Date: 20140515
  Serious: Yes (Other)
  Sender: FDA-Public Use
  Company Number: PHHY2012CA046031

PATIENT
  Sex: Female

DRUGS (6)
  1. ACLASTA [Suspect]
     Indication: OSTEOPOROSIS
     Dosage: UNK
     Route: 042
     Dates: start: 20110713
  2. ACLASTA [Suspect]
     Dosage: UNK
     Route: 042
     Dates: start: 20120725
  3. NORVASC [Concomitant]
  4. NEXIUM [Concomitant]
  5. LYRICA [Concomitant]
  6. VITAMIN D [Concomitant]

REACTIONS (3)
  - Macular degeneration [Unknown]
  - Fracture [Unknown]
  - Cataract [Unknown]
